FAERS Safety Report 25475447 (Version 1)
Quarter: 2025Q2

REPORT INFORMATION
  Report Type: Spontaneous
  Country: US (occurrence: US)
  Receive Date: 20250624
  Receipt Date: 20250624
  Transmission Date: 20250716
  Serious: Yes (Other)
  Sender: CENTRAL ADMIXTURE PHARMACY SERVICES, INC
  Company Number: US-Central Admixture Pharmacy Services, Inc. - Phoenix-2179307

PATIENT
  Age: 62 Year
  Sex: Female
  Weight: 69 kg

DRUGS (1)
  1. DEL NIDO FORMULA (ISOLYTE S, PH 7.4) [Suspect]
     Active Substance: LIDOCAINE HYDROCHLORIDE\MAGNESIUM CHLORIDE\MAGNESIUM SULFATE\MANNITOL\POTASSIUM CHLORIDE\POTASSIUM P
     Indication: Cardiac operation
     Dates: start: 20250610, end: 20250610

REACTIONS (1)
  - Drug ineffective [Unknown]

NARRATIVE: CASE EVENT DATE: 20250610
